FAERS Safety Report 4370566-9 (Version None)
Quarter: 2004Q2

REPORT INFORMATION
  Report Type: 
  Country: None (occurrence: None)
  Receive Date: 20040603
  Receipt Date: 20040527
  Transmission Date: 20050107
  Serious: Yes (Disabling)
  Sender: FDA-Public Use
  Company Number: US-MERCK-0405USA02089

PATIENT
  Age: 71 Year
  Sex: Male

DRUGS (3)
  1. ZETIA [Suspect]
     Indication: BLOOD CHOLESTEROL INCREASED
     Route: 048
     Dates: start: 20030101, end: 20040530
  2. ACIPHEX [Concomitant]
     Route: 065
  3. VIOXX [Concomitant]
     Route: 048

REACTIONS (2)
  - MUSCLE CRAMP [None]
  - STOMACH DISCOMFORT [None]
